FAERS Safety Report 9687641 (Version 1)
Quarter: 2013Q4

REPORT INFORMATION
  Report Type: Spontaneous
  Country: HU (occurrence: None)
  Receive Date: 20131112
  Receipt Date: 20131112
  Transmission Date: 20140711
  Serious: Yes (Hospitalization)
  Sender: FDA-Public Use
  Company Number: AUR-APL-2013-09473

PATIENT
  Age: 7 Decade
  Sex: Male

DRUGS (3)
  1. MIRTAZAPINE (MIRTAZAPINE) [Suspect]
     Indication: DEPRESSION
  2. CITALOPRAM (CITALOPRAM) [Suspect]
     Indication: DELUSION
  3. OLANZAPINE (OLANZAPINE) [Suspect]
     Indication: DEPRESSION

REACTIONS (13)
  - Intentional overdose [None]
  - Suicide attempt [None]
  - Death of relative [None]
  - Depression [None]
  - Hyponatraemia [None]
  - Clostridium difficile colitis [None]
  - Loss of consciousness [None]
  - Disorientation [None]
  - Respiratory disorder [None]
  - General physical health deterioration [None]
  - Bradyphrenia [None]
  - Poverty of thought content [None]
  - Psychomotor retardation [None]
